FAERS Safety Report 17967672 (Version 2)
Quarter: 2020Q3

REPORT INFORMATION
  Report Type: Spontaneous
  Country: US (occurrence: US)
  Receive Date: 20200701
  Receipt Date: 20200713
  Transmission Date: 20201103
  Serious: No
  Sender: FDA-Public Use
  Company Number: US-PFIZER INC-2020223516

PATIENT
  Age: 84 Year
  Sex: Male

DRUGS (1)
  1. CADUET [Suspect]
     Active Substance: AMLODIPINE BESYLATE\ATORVASTATIN CALCIUM
     Indication: ESSENTIAL HYPERTENSION
     Dosage: 1 DF, DAILY (1 TABLET EVERY DAY)
     Route: 048

REACTIONS (1)
  - Dyspnoea [Unknown]
